FAERS Safety Report 10149206 (Version 1)
Quarter: 2014Q2

REPORT INFORMATION
  Report Type: Spontaneous
  Country: US (occurrence: US)
  Receive Date: 20140502
  Receipt Date: 20140502
  Transmission Date: 20141212
  Serious: No
  Sender: FDA-Public Use
  Company Number: US-TARO-2014P1002136

PATIENT
  Age: 46 Year
  Sex: Female
  Weight: 108.86 kg

DRUGS (3)
  1. CARBAMAZEPINE EXTENDED RELEASE TABLETS USP 400MG [Suspect]
     Indication: CONVULSION
     Dates: start: 201109, end: 201402
  2. CARBAMAZEPINE EXTENDED RELEASE TABLETS USP 400MG [Suspect]
     Indication: CONVULSION
     Dates: start: 201402
  3. CLONIDINE [Concomitant]

REACTIONS (1)
  - Alopecia [Recovering/Resolving]
